FAERS Safety Report 5591153-0 (Version None)
Quarter: 2007Q4

REPORT INFORMATION
  Report Type: 
  Country: None (occurrence: None)
  Receive Date: 20071212
  Receipt Date: 20070809
  Transmission Date: 20080405
  Serious: Yes (Other)
  Sender: FDA-Public Use
  Company Number: USA-2007-0028758

PATIENT
  Sex: Female

DRUGS (1)
  1. OXYCONTIN [Suspect]
     Indication: NEURALGIA
     Dosage: ORAL
     Route: 048
     Dates: start: 20030101, end: 20070801

REACTIONS (5)
  - DRUG DEPENDENCE [None]
  - DRUG DOSE OMISSION [None]
  - DRUG TOLERANCE [None]
  - INADEQUATE ANALGESIA [None]
  - WITHDRAWAL SYNDROME [None]
